FAERS Safety Report 4854209-3 (Version None)
Quarter: 2005Q4

REPORT INFORMATION
  Report Type: 
  Country: None (occurrence: None)
  Receive Date: 20051213
  Receipt Date: 20051202
  Transmission Date: 20060501
  Serious: Yes (Hospitalization, Disabling, Other)
  Sender: FDA-Public Use
  Company Number: 2005154571

PATIENT
  Age: 71 Year
  Sex: Female
  Weight: 87.0906 kg

DRUGS (25)
  1. NEURONTIN [Suspect]
     Indication: DIABETIC NEUROPATHY
     Dates: start: 20051026, end: 20051109
  2. PENICILLIN G PROCAINE [Suspect]
     Indication: ILL-DEFINED DISORDER
     Dosage: INTRAVENOUS
     Route: 042
  3. NOVOLOG MIX 70/30 (INSULIN ASPART, PROTAMINE) [Concomitant]
  4. ACIDOPHILUS (LACTOBACILLUS ACIDOPHILUS) [Concomitant]
  5. CELEBREX [Concomitant]
  6. FOLIC ACID [Concomitant]
  7. IRON (IRON) [Concomitant]
  8. LASIX [Concomitant]
  9. MAGNESIUM OXIDE (MAGNESIUM OXIDE) [Concomitant]
  10. PLAVIX [Concomitant]
  11. ASPIRIN [Concomitant]
  12. PREDNISONE [Concomitant]
  13. PROTONIX [Concomitant]
  14. SYNTHROID [Concomitant]
  15. VERAPAMIL [Concomitant]
  16. SINGULAIR ^MERCK^ (MONTELUKAST SODIUM) [Concomitant]
  17. ZOCOR [Concomitant]
  18. TRICOR [Concomitant]
  19. LUMIGAN [Concomitant]
  20. PERCOCET [Concomitant]
  21. FLEXERIL (CYCLOBENZAPRINE HYDROCHLORIDE, PARACETAMOL) [Concomitant]
  22. ACETAMINOPHEN [Concomitant]
  23. ADVAIR DISKUS 100/50 [Concomitant]
  24. DUONEB (IPRATROPIUM BROMIDE, SALBUTAMOL SULFATE) [Concomitant]
  25. NYSTATIN [Concomitant]

REACTIONS (13)
  - ARTHRITIS INFECTIVE [None]
  - DIZZINESS [None]
  - DYSPHAGIA [None]
  - LOCAL SWELLING [None]
  - NECK PAIN [None]
  - NERVE COMPRESSION [None]
  - OEDEMA PERIPHERAL [None]
  - PAROTID GLAND ENLARGEMENT [None]
  - PNEUMONIA [None]
  - SCOTOMA [None]
  - SWELLING FACE [None]
  - THROAT IRRITATION [None]
  - WALKING AID USER [None]
